FAERS Safety Report 11216158 (Version 3)
Quarter: 2015Q3

REPORT INFORMATION
  Report Type: Spontaneous
  Country: US (occurrence: US)
  Receive Date: 20150624
  Receipt Date: 20150924
  Transmission Date: 20151125
  Serious: Yes (Hospitalization)
  Sender: FDA-Public Use
  Company Number: US-B.I. PHARMACEUTICALS,INC./RIDGEFIELD-2015-BI-32687BP

PATIENT
  Age: 70 Year
  Sex: Female
  Weight: 48 kg

DRUGS (5)
  1. ESTRADIOL. [Concomitant]
     Active Substance: ESTRADIOL
     Indication: HYSTERECTOMY
     Dosage: 0.0536 MG
     Route: 061
  2. SPIRIVA [Concomitant]
     Active Substance: TIOTROPIUM BROMIDE MONOHYDRATE
     Indication: CHRONIC OBSTRUCTIVE PULMONARY DISEASE
     Dosage: 18 MCG
     Route: 055
     Dates: start: 2014
  3. COMBIVENT [Suspect]
     Active Substance: ALBUTEROL SULFATE\IPRATROPIUM BROMIDE
     Indication: CHRONIC OBSTRUCTIVE PULMONARY DISEASE
     Dosage: DOSE PER APPLICATION AND DAILY DOSE: 20 MCG/ 100 MCG
     Route: 055
     Dates: start: 2012
  4. AMLODIPINE [Concomitant]
     Active Substance: AMLODIPINE BESYLATE
     Indication: HYPERTENSION
     Dosage: 5 MG
     Route: 048
  5. SIMVASTATIN. [Concomitant]
     Active Substance: SIMVASTATIN
     Indication: BLOOD CHOLESTEROL INCREASED
     Dosage: 10 MG
     Route: 048

REACTIONS (8)
  - Oropharyngeal pain [Not Recovered/Not Resolved]
  - Candida infection [Not Recovered/Not Resolved]
  - Gastrointestinal disorder [Unknown]
  - Pneumonia [Recovered/Resolved]
  - Dyspnoea exertional [Not Recovered/Not Resolved]
  - Pain in extremity [Not Recovered/Not Resolved]
  - Product quality issue [Unknown]
  - Spinal cord disorder [Not Recovered/Not Resolved]

NARRATIVE: CASE EVENT DATE: 2012
